FAERS Safety Report 5035321-5 (Version None)
Quarter: 2006Q2

REPORT INFORMATION
  Report Type: 
  Country: None (occurrence: None)
  Receive Date: 20060622
  Receipt Date: 20060605
  Transmission Date: 20061013
  Serious: Yes (Hospitalization)
  Sender: FDA-Public Use
  Company Number: FR200606000989

PATIENT
  Age: 62 Year
  Sex: Female

DRUGS (17)
  1. PROZAC [Suspect]
     Dosage: 20 MG, 2/D, ORAL
     Route: 048
     Dates: end: 20060211
  2. ATHYMIL (MIANSERIN HYDROCHLORIDE) [Concomitant]
  3. PRAVASTATIN [Concomitant]
  4. KARDEGIC /FRA/ (ACETYLSALICYLATE LYSINE) [Concomitant]
  5. VALSARTAN [Concomitant]
  6. CELECTOL [Concomitant]
  7. LANSOPRAZOLE [Concomitant]
  8. VALPROATE SODIUM [Concomitant]
  9. XANAX /USA/ (ALPRAZOLAM) [Concomitant]
  10. NOCTAMID/GFR/(LORMETAZEPAM) [Concomitant]
  11. IMOVANE (ZOPICLONE) [Concomitant]
  12. BRONCHODUAL (FENOTEROL HYDROBROMIDE, IPRATROPIUM BROMIDE) [Concomitant]
  13. LACTULOSE [Concomitant]
  14. DAFALGAN /FRA/ (PARACETAMOL) [Concomitant]
  15. PIVALONE /FRA/ (TIXOCORTOL PIVALATE) [Concomitant]
  16. CELESTONE [Concomitant]
  17. BRONCHOKOD (CARBOCISTEINE) [Concomitant]

REACTIONS (7)
  - ALANINE AMINOTRANSFERASE INCREASED [None]
  - ASPARTATE AMINOTRANSFERASE INCREASED [None]
  - BLOOD ALKALINE PHOSPHATASE INCREASED [None]
  - GAMMA-GLUTAMYLTRANSFERASE INCREASED [None]
  - HEPATOCELLULAR DAMAGE [None]
  - LABORATORY TEST ABNORMAL [None]
  - VASCULAR CALCIFICATION [None]
